FAERS Safety Report 10256754 (Version 1)
Quarter: 2014Q2

REPORT INFORMATION
  Report Type: Spontaneous
  Country: US (occurrence: US)
  Receive Date: 20140624
  Receipt Date: 20140624
  Transmission Date: 20141212
  Serious: No
  Sender: FDA-Public Use
  Company Number: US-009507513-1406USA006308

PATIENT
  Sex: Female
  Weight: 40.82 kg

DRUGS (1)
  1. NEXPLANON [Suspect]
     Indication: CONTRACEPTION
     Dosage: 3 YEAR IMPLANT IN LEFT ARM
     Route: 059
     Dates: start: 20140402

REACTIONS (3)
  - Menorrhagia [Unknown]
  - Dizziness [Unknown]
  - Hormone level abnormal [Unknown]
